FAERS Safety Report 8225384-8 (Version None)
Quarter: 2012Q1

REPORT INFORMATION
  Report Type: 
  Country: None (occurrence: None)
  Receive Date: 20120321
  Receipt Date: 20120312
  Transmission Date: 20120608
  Serious: Yes (Hospitalization)
  Sender: FDA-Public Use
  Company Number: SK-ELI_LILLY_AND_COMPANY-SK201202006470

PATIENT
  Age: 80 Year
  Sex: Female

DRUGS (8)
  1. TRIMETAZIDIN [Concomitant]
  2. ISOSORBID MONONITRATE [Concomitant]
  3. TEBOKAN [Concomitant]
  4. FORTEO [Suspect]
     Indication: OSTEOPOROSIS POSTMENOPAUSAL
     Dosage: 20 UG, QD
     Route: 058
     Dates: start: 20110825
  5. PRENESSA [Concomitant]
  6. AGEN [Concomitant]
  7. ENELBIN [Concomitant]
  8. METAMIZOLE [Concomitant]

REACTIONS (1)
  - PULMONARY TUBERCULOSIS [None]
